FAERS Safety Report 10142954 (Version 1)
Quarter: 2014Q2

REPORT INFORMATION
  Report Type: Spontaneous
  Country: FR (occurrence: FR)
  Receive Date: 20140430
  Receipt Date: 20140430
  Transmission Date: 20141212
  Serious: Yes (Hospitalization)
  Sender: FDA-Public Use
  Company Number: FR-ROCHE-1390189

PATIENT
  Age: 73 Year
  Sex: Female

DRUGS (2)
  1. AVASTIN [Suspect]
     Indication: PRODUCT USED FOR UNKNOWN INDICATION
     Dosage: 0.7143 MG/KG
     Route: 051
     Dates: start: 20120711, end: 20131213
  2. TEMOZOLOMIDE [Concomitant]

REACTIONS (2)
  - Skin necrosis [Recovered/Resolved with Sequelae]
  - Osteitis [Recovered/Resolved with Sequelae]
